FAERS Safety Report 7044515-9 (Version None)
Quarter: 2010Q3

REPORT INFORMATION
  Report Type: 
  Country: None (occurrence: None)
  Receive Date: 20100929
  Receipt Date: 20100929
  Transmission Date: 20110219
  Serious: No
  Sender: FDA-Public Use
  Company Number: US-WYE-H16276010

PATIENT
  Age: 24 Year
  Sex: Male
  Weight: 86.26 kg

DRUGS (6)
  1. PRISTIQ [Suspect]
     Indication: DEPRESSION
     Dosage: 50 MG 1X PER 1 DAY, ORAL
     Route: 048
     Dates: start: 20100701, end: 20100701
  2. ASACOL [Concomitant]
  3. PURINETHOL [Concomitant]
  4. SINGULAIR [Concomitant]
  5. ZOLMITRIPTAN (ZOLMITRIPTAN) [Concomitant]
  6. VALTREX [Concomitant]

REACTIONS (1)
  - HEADACHE [None]
